FAERS Safety Report 7078146-1 (Version None)
Quarter: 2010Q4

REPORT INFORMATION
  Report Type: 
  Country: None (occurrence: None)
  Receive Date: 20101102
  Receipt Date: 20101020
  Transmission Date: 20110411
  Serious: Yes (Disabling, Other)
  Sender: FDA-Public Use
  Company Number: US-PAR PHARMACEUTICAL, INC-2010SCPR002161

PATIENT

DRUGS (1)
  1. NASCOBAL [Suspect]
     Indication: ANAEMIA VITAMIN B12 DEFICIENCY
     Dosage: 500 MCG/SPRAY, WEEKLY
     Route: 045
     Dates: start: 20100809, end: 20100811

REACTIONS (3)
  - HYPERSENSITIVITY [None]
  - RASH [None]
  - URTICARIA [None]
